FAERS Safety Report 24861698 (Version 1)
Quarter: 2025Q1

REPORT INFORMATION
  Report Type: Spontaneous
  Country: DK (occurrence: DK)
  Receive Date: 20250120
  Receipt Date: 20250120
  Transmission Date: 20250409
  Serious: Yes (Other)
  Sender: NOVO NORDISK
  Company Number: None

PATIENT
  Age: 52 Year
  Sex: Female
  Weight: 115 kg

DRUGS (1)
  1. WEGOVY [Suspect]
     Active Substance: SEMAGLUTIDE
     Indication: Overweight
     Dosage: 1.7 MG, QW
     Dates: start: 202305, end: 202311

REACTIONS (4)
  - Retinal tear [Unknown]
  - Retinal detachment [Unknown]
  - Visual impairment [Not Recovered/Not Resolved]
  - Photopsia [Unknown]

NARRATIVE: CASE EVENT DATE: 20230101
